FAERS Safety Report 12806187 (Version 1)
Quarter: 2016Q4

REPORT INFORMATION
  Report Type: Spontaneous
  Country: US (occurrence: US)
  Receive Date: 20161004
  Receipt Date: 20161004
  Transmission Date: 20170207
  Serious: Yes (Hospitalization)
  Sender: FDA-Public Use
  Company Number: None

PATIENT
  Sex: Male

DRUGS (10)
  1. MORPHINE [Concomitant]
     Active Substance: MORPHINE
  2. METAMUCIL [Concomitant]
     Active Substance: PLANTAGO SEED
  3. CYMBALTA [Concomitant]
     Active Substance: DULOXETINE HYDROCHLORIDE
  4. ESBRIET [Suspect]
     Active Substance: PIRFENIDONE
     Indication: IDIOPATHIC PULMONARY FIBROSIS
     Route: 048
     Dates: start: 20160103
  5. BUPROPION. [Concomitant]
     Active Substance: BUPROPION
  6. OMEPRAZOLE. [Concomitant]
     Active Substance: OMEPRAZOLE
  7. HCTZ [Concomitant]
     Active Substance: HYDROCHLOROTHIAZIDE
  8. LOVASTATIN. [Concomitant]
     Active Substance: LOVASTATIN
  9. NIFEDIPINE. [Concomitant]
     Active Substance: NIFEDIPINE
  10. TYLENOL [Concomitant]
     Active Substance: ACETAMINOPHEN

REACTIONS (3)
  - Fatigue [None]
  - Decreased appetite [None]
  - Drug dose omission [None]

NARRATIVE: CASE EVENT DATE: 2016
